FAERS Safety Report 19148209 (Version 1)
Quarter: 2021Q2

REPORT INFORMATION
  Report Type: Spontaneous
  Country: RU (occurrence: RU)
  Receive Date: 20210416
  Receipt Date: 20210416
  Transmission Date: 20210717
  Serious: Yes (Hospitalization, Other)
  Sender: FDA-Public Use
  Company Number: RU-SA-2021SA113813

PATIENT
  Age: 58 Year
  Sex: Female
  Weight: 91.65 kg

DRUGS (7)
  1. LORNOXICAM [Suspect]
     Active Substance: LORNOXICAM
     Indication: RHEUMATOID ARTHRITIS
     Dosage: UNK (PERIODICALLY)
     Route: 065
     Dates: start: 1986, end: 2021
  2. ARAVA [Suspect]
     Active Substance: LEFLUNOMIDE
     Indication: RHEUMATOID ARTHRITIS
     Dosage: 20 MG, QD
     Route: 048
     Dates: start: 2018, end: 2020
  3. DICLOFENAC [Suspect]
     Active Substance: DICLOFENAC
     Indication: RHEUMATOID ARTHRITIS
     Dosage: 50 MG, QD, PERIODICALLY
     Route: 048
     Dates: start: 1986, end: 202102
  4. MELOXICAM. [Suspect]
     Active Substance: MELOXICAM
     Indication: RHEUMATOID ARTHRITIS
     Dosage: UNK (PERIODICALLY)
     Route: 065
     Dates: start: 1986, end: 202102
  5. PREDNISOLONE. [Suspect]
     Active Substance: PREDNISOLONE
     Indication: RHEUMATOID ARTHRITIS
     Dosage: 30?25?15 MG, QD
     Route: 065
     Dates: start: 1986, end: 2021
  6. ACECLOFENAC [Suspect]
     Active Substance: ACECLOFENAC
     Indication: RHEUMATOID ARTHRITIS
     Dosage: 100 MG (PERIODICALLY)
     Route: 065
     Dates: start: 1986, end: 2021
  7. METHOTREXATE. [Concomitant]
     Active Substance: METHOTREXATE
     Indication: RHEUMATOID ARTHRITIS
     Dosage: 2.5 MG, QD
     Dates: start: 2009, end: 2017

REACTIONS (3)
  - Tubulointerstitial nephritis [Not Recovered/Not Resolved]
  - Duodenal ulcer [Unknown]
  - Chronic kidney disease [Not Recovered/Not Resolved]

NARRATIVE: CASE EVENT DATE: 2020
